FAERS Safety Report 9707918 (Version 2)
Quarter: 2013Q4

REPORT INFORMATION
  Report Type: Spontaneous
  Country: US (occurrence: US)
  Receive Date: 20131125
  Receipt Date: 20131217
  Transmission Date: 20140711
  Serious: No
  Sender: FDA-Public Use
  Company Number: US-009507513-1311USA010489

PATIENT
  Sex: Female
  Weight: 69.39 kg

DRUGS (2)
  1. OXYTROL FOR WOMEN [Suspect]
     Indication: URINARY INCONTINENCE
     Dosage: 1 DF, Q4D
     Route: 062
  2. LACTAID [Concomitant]
     Indication: COW^S MILK INTOLERANCE
     Dosage: UNK, UNKNOWN

REACTIONS (2)
  - Abdominal discomfort [Unknown]
  - Product quality issue [Unknown]
